FAERS Safety Report 19241539 (Version 1)
Quarter: 2021Q2

REPORT INFORMATION
  Report Type: Spontaneous
  Country: CA (occurrence: CA)
  Receive Date: 20210511
  Receipt Date: 20210511
  Transmission Date: 20210717
  Serious: Yes (Life-Threatening, Hospitalization, Other)
  Sender: FDA-Public Use
  Company Number: CA-TILLOMEDPR-2018-EPL-004132

PATIENT
  Age: 87 Year
  Sex: Female
  Weight: 68 kg

DRUGS (18)
  1. DONEPEZIL. [Suspect]
     Active Substance: DONEPEZIL
     Route: 048
  2. NOREPINEPHRINE BITARTRATE. [Concomitant]
     Active Substance: NOREPINEPHRINE BITARTRATE
     Route: 042
  3. DILAUDID [Concomitant]
     Active Substance: HYDROMORPHONE HYDROCHLORIDE
  4. FLOVENT [Concomitant]
     Active Substance: FLUTICASONE PROPIONATE
  5. KCL SOLUTION A 20% [Concomitant]
     Route: 048
  6. LEVOPHED [Concomitant]
     Active Substance: NOREPINEPHRINE BITARTRATE
     Route: 042
  7. LOVENOX [Concomitant]
     Active Substance: ENOXAPARIN SODIUM
     Route: 058
  8. TAMIFLU [Concomitant]
     Active Substance: OSELTAMIVIR PHOSPHATE
  9. TYLENOL [Concomitant]
     Active Substance: ACETAMINOPHEN
  10. PANTOLOC [Concomitant]
     Active Substance: PANTOPRAZOLE SODIUM
  11. PROPOFOL. [Concomitant]
     Active Substance: PROPOFOL
  12. NOVORAPID (10ML VIAL) [Concomitant]
     Route: 058
  13. PIPERACILLIN/TAZOBACTAM [Concomitant]
     Active Substance: PIPERACILLIN SODIUM\TAZOBACTAM SODIUM
  14. GRAVOL [Concomitant]
     Active Substance: DIMENHYDRINATE
  15. HYDRALAZINE [Concomitant]
     Active Substance: HYDRALAZINE HYDROCHLORIDE
  16. IPRATROPIUM/SALBUTAMOL [Concomitant]
     Active Substance: ALBUTEROL\IPRATROPIUM BROMIDE
  17. ZANTAC [Concomitant]
     Active Substance: RANITIDINE HYDROCHLORIDE
  18. FUROSEMIDE INJ USP [Concomitant]
     Active Substance: FUROSEMIDE
     Route: 030

REACTIONS (3)
  - Atrioventricular block complete [Recovered/Resolved]
  - Cardiac pacemaker insertion [Recovered/Resolved]
  - Resuscitation [Recovered/Resolved]
